FAERS Safety Report 5414831-2 (Version None)
Quarter: 2007Q3

REPORT INFORMATION
  Report Type: 
  Country: None (occurrence: None)
  Receive Date: 20070815
  Receipt Date: 20070810
  Transmission Date: 20080115
  Serious: Yes (Hospitalization)
  Sender: FDA-Public Use
  Company Number: US-BAXTER-2007BH007006

PATIENT
  Age: 70 Year
  Sex: Male

DRUGS (16)
  1. DEXAMETHASONE 0.5MG TAB [Suspect]
     Indication: PROPHYLAXIS OF NAUSEA AND VOMITING
     Route: 042
     Dates: start: 20060711, end: 20060712
  2. PLACEBO [Suspect]
     Indication: PROPHYLAXIS OF NAUSEA AND VOMITING
     Route: 042
     Dates: start: 20060711, end: 20060713
  3. ALOXI [Suspect]
     Indication: PROPHYLAXIS OF NAUSEA AND VOMITING
     Route: 042
     Dates: start: 20060711, end: 20060713
  4. MELPHALAN [Suspect]
     Indication: PROPHYLAXIS OF NAUSEA AND VOMITING
     Route: 065
     Dates: start: 20070711, end: 20070712
  5. LANSOPRAZOLE [Concomitant]
     Indication: PEPTIC ULCER
     Route: 048
  6. VALACYCLOVIR HCL [Concomitant]
     Indication: DRUG USE FOR UNKNOWN INDICATION
     Route: 048
  7. FLUCONAZOLE [Concomitant]
     Indication: DRUG USE FOR UNKNOWN INDICATION
     Route: 048
  8. PENTAMIDINE ISETHIONATE [Concomitant]
     Route: 042
  9. PROMETHAZINE [Concomitant]
     Route: 042
  10. FILGRASTIM [Concomitant]
     Indication: ENGRAFTMENT SYNDROME
     Route: 065
  11. CITALOPRAM HYDROBROMIDE [Concomitant]
     Indication: DEPRESSION
     Route: 048
  12. LORAZEPAM [Concomitant]
     Indication: ANXIETY
     Route: 048
  13. SYNTHROID [Concomitant]
     Indication: HYPOTHYROIDISM
     Route: 048
  14. PSYLLIUM [Concomitant]
     Indication: CONSTIPATION
     Dosage: DOSE UNIT:UNKNOWN
     Route: 048
  15. TRAVOPROST [Concomitant]
     Indication: GLAUCOMA
  16. TIMOLOL MALEATE [Concomitant]
     Indication: GLAUCOMA

REACTIONS (1)
  - FEBRILE NEUTROPENIA [None]
